FAERS Safety Report 7301284-2 (Version None)
Quarter: 2011Q1

REPORT INFORMATION
  Report Type: 
  Country: None (occurrence: None)
  Receive Date: 20110218
  Receipt Date: 20110210
  Transmission Date: 20110831
  Serious: Yes (Death, Hospitalization)
  Sender: FDA-Public Use
  Company Number: DE-ALEXION-A201001291

PATIENT

DRUGS (7)
  1. CARBAPENEMS [Concomitant]
  2. NIFEDIPINE [Concomitant]
     Dosage: UNK
     Route: 062
     Dates: start: 20100601
  3. SOLIRIS [Suspect]
     Indication: PAROXYSMAL NOCTURNAL HAEMOGLOBINURIA
     Dosage: 600 MG, UNK
     Route: 042
     Dates: start: 20100304, end: 20101101
  4. PANTOZOL                           /01263202/ [Concomitant]
     Dosage: 40 MG, QD
     Route: 048
  5. LIDOCAINE [Concomitant]
     Dosage: UNK
     Route: 062
     Dates: start: 20100601
  6. METAMIZOL                          /00039502/ [Concomitant]
  7. LINEZOLID [Concomitant]

REACTIONS (9)
  - GENERAL PHYSICAL HEALTH DETERIORATION [None]
  - PYREXIA [None]
  - CELLULITIS ORBITAL [None]
  - ANAL FISSURE [None]
  - GINGIVAL BLEEDING [None]
  - SUBARACHNOID HAEMORRHAGE [None]
  - INFECTION [None]
  - ANAL ABSCESS [None]
  - CEREBRAL HAEMATOMA [None]
